FAERS Safety Report 20512311 (Version 2)
Quarter: 2022Q1

REPORT INFORMATION
  Report Type: Spontaneous
  Country: JP (occurrence: JP)
  Receive Date: 20220224
  Receipt Date: 20220307
  Transmission Date: 20220423
  Serious: Yes (Other)
  Sender: FDA-Public Use
  Company Number: JP-Teva Takeda Yakuhin-2022-JP-000831J

PATIENT
  Age: 42 Year
  Sex: Male

DRUGS (4)
  1. PREDNISOLONE [Suspect]
     Active Substance: PREDNISOLONE
     Indication: Pemphigus
     Route: 048
     Dates: start: 20211001
  2. PREDNISOLONE [Suspect]
     Active Substance: PREDNISOLONE
     Route: 048
     Dates: start: 20211127
  3. PREDNISOLONE [Suspect]
     Active Substance: PREDNISOLONE
     Route: 048
  4. PREDNISOLONE [Suspect]
     Active Substance: PREDNISOLONE
     Route: 048

REACTIONS (18)
  - Loss of consciousness [Unknown]
  - Neuropathy peripheral [Recovering/Resolving]
  - Presyncope [Unknown]
  - Poriomania [Unknown]
  - Chest pain [Unknown]
  - Back pain [Unknown]
  - Abdominal pain upper [Unknown]
  - Back pain [Unknown]
  - Muscular weakness [Recovering/Resolving]
  - Motor dysfunction [Unknown]
  - Hypoaesthesia [Unknown]
  - Peroneal nerve palsy [Unknown]
  - Insomnia [Unknown]
  - Dyspepsia [Unknown]
  - Anxiety [Recovered/Resolved]
  - Depressive symptom [Unknown]
  - Nervousness [Unknown]
  - Irritability [Unknown]

NARRATIVE: CASE EVENT DATE: 20211001
